FAERS Safety Report 4974891-X (Version None)
Quarter: 2006Q1

REPORT INFORMATION
  Report Type: 
  Country: None (occurrence: None)
  Receive Date: 20060227
  Receipt Date: 20051201
  Transmission Date: 20060701
  Serious: No
  Sender: FDA-Public Use
  Company Number: PHEH2005US13115

PATIENT
  Age: 44 Year
  Sex: Male

DRUGS (1)
  1. ENABLEX [Suspect]
     Indication: BLADDER SPASM
     Dates: start: 20051111, end: 20051119

REACTIONS (2)
  - MUSCLE SPASMS [None]
  - URINE OUTPUT DECREASED [None]
